FAERS Safety Report 4305361-X (Version None)
Quarter: 2004Q1

REPORT INFORMATION
  Report Type: 
  Country: None (occurrence: None)
  Receive Date: 20040226
  Receipt Date: 20030811
  Transmission Date: 20041129
  Serious: No
  Sender: FDA-Public Use
  Company Number: US-BRISTOL-MYERS SQUIBB COMPANY-12351870

PATIENT
  Age: 60 Year
  Sex: Female
  Weight: 82 kg

DRUGS (12)
  1. TAXOL [Suspect]
     Indication: OVARIAN CANCER
     Route: 042
     Dates: start: 20030808
  2. AMARYL [Concomitant]
  3. DITROPAN XL [Concomitant]
  4. PREMARIN [Concomitant]
  5. NEURONTIN [Concomitant]
  6. WELLBUTRIN [Concomitant]
  7. LORTAB [Concomitant]
  8. PEPCID [Concomitant]
     Indication: PREMEDICATION
  9. BENADRYL [Concomitant]
     Indication: PREMEDICATION
  10. ZOFRAN [Concomitant]
     Indication: PREMEDICATION
  11. ATIVAN [Concomitant]
     Indication: PREMEDICATION
  12. DECADRON [Concomitant]
     Indication: PREMEDICATION

REACTIONS (1)
  - INJECTION SITE REACTION [None]
